FAERS Safety Report 4325543-0 (Version None)
Quarter: 2004Q1

REPORT INFORMATION
  Report Type: 
  Country: None (occurrence: None)
  Receive Date: 20040324
  Receipt Date: 20040310
  Transmission Date: 20041129
  Serious: Yes (Hospitalization)
  Sender: FDA-Public Use
  Company Number: 2004000563

PATIENT
  Age: 30 Year
  Sex: Female

DRUGS (7)
  1. GEODON [Suspect]
     Indication: DEPRESSION
     Dosage: 120 MG (BID), ORAL
     Route: 048
     Dates: start: 20030101, end: 20030416
  2. BUPROPION HYDROCHLORIDE [Concomitant]
  3. PAROXETINE HCL [Concomitant]
  4. ALPRAZOLAM [Concomitant]
  5. DESPIRAMINE HYDROCHLORIDE [Concomitant]
  6. CETIRIZINE HCL [Concomitant]
  7. TRAMADOL HCL [Concomitant]

REACTIONS (8)
  - BLOOD MAGNESIUM DECREASED [None]
  - CARDIAC MURMUR [None]
  - CONTUSION [None]
  - ELECTROCARDIOGRAM QT CORRECTED INTERVAL PROLONGED [None]
  - HYPOCALCAEMIA [None]
  - LIVER PALPABLE SUBCOSTAL [None]
  - PITTING OEDEMA [None]
  - SYNCOPE [None]
